FAERS Safety Report 6669829-3 (Version None)
Quarter: 2010Q2

REPORT INFORMATION
  Report Type: 
  Country: None (occurrence: None)
  Receive Date: 20100406
  Receipt Date: 20100111
  Transmission Date: 20101027
  Serious: No
  Sender: FDA-Public Use
  Company Number: US-ALLERGAN-0905836US

PATIENT
  Age: 44 Year
  Sex: Female
  Weight: 60.771 kg

DRUGS (4)
  1. LATISSE [Suspect]
     Indication: GROWTH OF EYELASHES
     Dosage: UNK, QD
     Dates: start: 20090327
  2. SYNTHROID [Concomitant]
     Indication: HYPOTHYROIDISM
     Dosage: 50 UG, QD
  3. ALDACTONE [Concomitant]
     Dosage: UNK, QD
  4. DOXYCYCLINE [Concomitant]
     Indication: ACNE
     Dosage: UNK, QD

REACTIONS (1)
  - MADAROSIS [None]
